FAERS Safety Report 9342872 (Version 1)
Quarter: 2013Q2

REPORT INFORMATION
  Report Type: Report from Study
  Country: MX (occurrence: MX)
  Receive Date: 20130611
  Receipt Date: 20130611
  Transmission Date: 20140414
  Serious: Yes (Other)
  Sender: FDA-Public Use
  Company Number: PHHY2013MX059092

PATIENT
  Age: 83 Year
  Sex: Male

DRUGS (1)
  1. CO-DIOVAN [Suspect]
     Indication: HYPERTENSION
     Dosage: 1 DF, (160/12.5 MG) DAILY
     Route: 048
     Dates: start: 20130414

REACTIONS (1)
  - Gastric ulcer [Not Recovered/Not Resolved]
